FAERS Safety Report 19911058 (Version 1)
Quarter: 2021Q3

REPORT INFORMATION
  Report Type: Spontaneous
  Country: US (occurrence: US)
  Receive Date: 20210924
  Receipt Date: 20210924
  Transmission Date: 20211014
  Serious: Yes (Death, Hospitalization, Disabling)
  Sender: FDA-Public Use
  Company Number: None

PATIENT
  Age: 5 Year
  Sex: Male
  Weight: 14.97 kg

DRUGS (2)
  1. GADOLINIUM [Suspect]
     Active Substance: GADOLINIUM
  2. MRI MACHINE [Suspect]
     Active Substance: DEVICE

REACTIONS (2)
  - Contrast media toxicity [None]
  - Burning sensation [None]

NARRATIVE: CASE EVENT DATE: 20210309
